FAERS Safety Report 4297246-2 (Version None)
Quarter: 2004Q1

REPORT INFORMATION
  Report Type: 
  Country: None (occurrence: None)
  Receive Date: 20040213
  Receipt Date: 20040206
  Transmission Date: 20041129
  Serious: Yes (Life-Threatening)
  Sender: FDA-Public Use
  Company Number: 031210-PM0218-01

PATIENT

DRUGS (4)
  1. NEMBUTAL [Suspect]
     Indication: COMPUTERISED TOMOGRAM
     Dosage: IV
     Route: 042
     Dates: start: 20030101, end: 20030101
  2. NEMBUTAL [Suspect]
     Indication: SEDATION
     Dosage: IV
     Route: 042
     Dates: start: 20030101, end: 20030101
  3. MIDAZOLAM HCL [Suspect]
     Indication: COMPUTERISED TOMOGRAM
     Dates: start: 20030101, end: 20030101
  4. MIDAZOLAM HCL [Suspect]
     Indication: SEDATION
     Dates: start: 20030101, end: 20030101

REACTIONS (2)
  - APNOEA [None]
  - RESPIRATORY DEPRESSION [None]
